FAERS Safety Report 6767019-7 (Version None)
Quarter: 2010Q2

REPORT INFORMATION
  Report Type: 
  Country: None (occurrence: None)
  Receive Date: 20100611
  Receipt Date: 20100602
  Transmission Date: 20101027
  Serious: Yes (Death)
  Sender: FDA-Public Use
  Company Number: BR-MERCK-1006BRA00008

PATIENT
  Sex: Female

DRUGS (3)
  1. JANUVIA [Suspect]
     Indication: TYPE 2 DIABETES MELLITUS
     Route: 048
     Dates: start: 20070101, end: 20100101
  2. METFORMIN [Concomitant]
     Route: 065
  3. PIOGLITAZONE HYDROCHLORIDE [Concomitant]
     Route: 065

REACTIONS (1)
  - PANCREATIC CARCINOMA [None]
